FAERS Safety Report 20075501 (Version 2)
Quarter: 2021Q4

REPORT INFORMATION
  Report Type: Spontaneous
  Country: US (occurrence: US)
  Receive Date: 20211116
  Receipt Date: 20211217
  Transmission Date: 20220303
  Serious: Yes (Other)
  Sender: FDA-Public Use
  Company Number: US-GLAXOSMITHKLINE-USCH2021AMR081890

PATIENT
  Sex: Female
  Weight: 70.7 kg

DRUGS (24)
  1. ASPIRIN [Suspect]
     Active Substance: ASPIRIN
     Indication: Product used for unknown indication
     Dosage: 81 MG, DAILY
     Route: 048
  2. VOLTAREN [Suspect]
     Active Substance: DICLOFENAC SODIUM
     Indication: Pain
     Dosage: 4 G (100 G), QID, AS NEEDED
     Route: 061
     Dates: start: 20210728
  3. NIRAPARIB [Suspect]
     Active Substance: NIRAPARIB
     Indication: Fallopian tube cancer
     Dosage: 200 MG, QD (AT NIGHT)
     Route: 048
     Dates: start: 20210530
  4. NIRAPARIB [Suspect]
     Active Substance: NIRAPARIB
     Dosage: 200 MG, QD
     Route: 048
     Dates: start: 20210610
  5. ELIQUIS [Suspect]
     Active Substance: APIXABAN
     Indication: Adenocarcinoma
     Dosage: 1 DF, BID
     Route: 048
     Dates: start: 20210930
  6. ELIQUIS [Suspect]
     Active Substance: APIXABAN
     Indication: Thyroid mass
  7. ELIQUIS [Suspect]
     Active Substance: APIXABAN
     Indication: Gastrointestinal wall thickening
  8. ELIQUIS [Suspect]
     Active Substance: APIXABAN
     Indication: Anaemia
  9. ELIQUIS [Suspect]
     Active Substance: APIXABAN
     Indication: Deep vein thrombosis
  10. COENZYME Q10 [Suspect]
     Active Substance: DIETARY SUPPLEMENT\UBIDECARENONE
     Indication: Product used for unknown indication
     Dosage: 100 MG (AS NEEDED), NIGHT
     Route: 048
  11. TIAZAC [Suspect]
     Active Substance: DILTIAZEM HYDROCHLORIDE
     Indication: Product used for unknown indication
     Dosage: 1 DF (180 G), DAILY
     Route: 048
     Dates: start: 20210322
  12. FLOVENT HFA [Suspect]
     Active Substance: FLUTICASONE PROPIONATE
     Indication: Product used for unknown indication
     Dosage: 2 PUFF(S), BID
     Route: 055
     Dates: start: 20210322
  13. NEURONTIN [Suspect]
     Active Substance: GABAPENTIN
     Indication: Pain
     Dosage: 100 MG (AS NEEDED0
     Route: 048
     Dates: start: 20210929
  14. NEURONTIN [Suspect]
     Active Substance: GABAPENTIN
     Dosage: 300 MG, BID
     Route: 048
     Dates: start: 20210929
  15. GLUCOTROL [Suspect]
     Active Substance: GLIPIZIDE
     Indication: Product used for unknown indication
     Dosage: 5 MG, BID
     Route: 048
     Dates: start: 20210322
  16. CHONDROITIN SULFATE (BOVINE)\GLUCOSAMINE HYDROCHLORIDE [Suspect]
     Active Substance: CHONDROITIN SULFATE (BOVINE)\GLUCOSAMINE HYDROCHLORIDE
     Indication: Product used for unknown indication
     Dosage: 1 DF (500-400 MG), NIGHTLY
     Route: 048
  17. NOVOLOG [Suspect]
     Active Substance: INSULIN ASPART
     Indication: Product used for unknown indication
     Dosage: 100 UNIT /ML(3 ML), QID
     Route: 058
     Dates: start: 20210322
  18. LANTUS [Suspect]
     Active Substance: INSULIN GLARGINE
     Indication: Product used for unknown indication
     Dosage: UNK (100 UNIT/ML), NIGHT
     Route: 058
     Dates: start: 20210322
  19. COZAAR [Suspect]
     Active Substance: LOSARTAN POTASSIUM
     Indication: Product used for unknown indication
     Dosage: 1 DF, QD
     Route: 048
     Dates: start: 20210322
  20. ZOFRAN [Suspect]
     Active Substance: ONDANSETRON HYDROCHLORIDE
     Indication: Product used for unknown indication
     Dosage: 8 MG, TID
     Dates: start: 20201117
  21. BETAPACE [Suspect]
     Active Substance: SOTALOL HYDROCHLORIDE
     Indication: Product used for unknown indication
     Dosage: 1 DF, BID
     Dates: start: 20210322
  22. DOCUSATE SENNOSIDES [Suspect]
     Active Substance: DOCUSATE SODIUM\SENNOSIDES A AND B
     Indication: Product used for unknown indication
     Dosage: 1 DF, QD (8.6-50 MG)
     Route: 048
     Dates: start: 20210902
  23. PREVIDENT [Suspect]
     Active Substance: SODIUM FLUORIDE
     Indication: Product used for unknown indication
     Dosage: UNK, BID
     Dates: start: 20210728
  24. SITAGLIPTIN [Suspect]
     Active Substance: SITAGLIPTIN
     Indication: Product used for unknown indication
     Dosage: 50 MG, QD
     Route: 048

REACTIONS (4)
  - Ovarian vein thrombosis [Unknown]
  - Thrombosis [Recovering/Resolving]
  - Blood glucose increased [Unknown]
  - Blood pressure increased [Unknown]
